FAERS Safety Report 18123855 (Version 2)
Quarter: 2020Q3

REPORT INFORMATION
  Report Type: Spontaneous
  Country: JP (occurrence: JP)
  Receive Date: 20200807
  Receipt Date: 20200826
  Transmission Date: 20201103
  Serious: Yes (Other)
  Sender: FDA-Public Use
  Company Number: JP-VIIV HEALTHCARE LIMITED-JP2020JPN151319

PATIENT
  Age: 43 Year
  Sex: Female

DRUGS (6)
  1. TENOFOVIR ALAFENAMIDE FUMARATE [Concomitant]
     Active Substance: TENOFOVIR ALAFENAMIDE FUMARATE
     Indication: HIV INFECTION
     Dosage: UNK
  2. TIVICAY [Suspect]
     Active Substance: DOLUTEGRAVIR SODIUM
     Indication: HIV INFECTION
     Dosage: UNK
     Route: 048
  3. EMTRICITABINE [Concomitant]
     Active Substance: EMTRICITABINE
     Indication: HIV INFECTION
     Dosage: UNK
  4. OLAPARIB. [Suspect]
     Active Substance: OLAPARIB
     Dosage: 500 MG, 1D
  5. ATOVAQUONE. [Concomitant]
     Active Substance: ATOVAQUONE
     Indication: OPPORTUNISTIC INFECTION PROPHYLAXIS
     Dosage: UNK
  6. OLAPARIB. [Suspect]
     Active Substance: OLAPARIB
     Indication: BREAST CANCER METASTATIC
     Dosage: 600 MG, 1D

REACTIONS (19)
  - Cough [Unknown]
  - Decreased appetite [Unknown]
  - Breast mass [Unknown]
  - Paralysis recurrent laryngeal nerve [Unknown]
  - Nausea [Unknown]
  - Metastases to central nervous system [Unknown]
  - Metastases to liver [Unknown]
  - Lymphadenopathy [Unknown]
  - White blood cell count decreased [Unknown]
  - Cancer pain [Unknown]
  - Metastases to lung [Unknown]
  - Anaemia [Unknown]
  - Triple negative breast cancer [Unknown]
  - Sensory disturbance [Unknown]
  - Metastases to bone [Unknown]
  - Dysphonia [Unknown]
  - Dysarthria [Unknown]
  - Metastases to lymph nodes [Unknown]
  - Hypophagia [Unknown]
